FAERS Safety Report 7310530-0 (Version None)
Quarter: 2011Q1

REPORT INFORMATION
  Report Type: 
  Country: None (occurrence: None)
  Receive Date: 20110224
  Receipt Date: 20101206
  Transmission Date: 20110831
  Serious: No
  Sender: FDA-Public Use
  Company Number: US-BRISTOL-MYERS SQUIBB COMPANY-15425317

PATIENT
  Age: 26 Year
  Sex: Female
  Weight: 86 kg

DRUGS (2)
  1. ALDOMET [Concomitant]
  2. METFORMIN HCL [Suspect]
     Dosage: IN MAY/JUNE (2010).
     Dates: start: 20100101

REACTIONS (2)
  - OROPHARYNGEAL PAIN [None]
  - THROAT IRRITATION [None]
